FAERS Safety Report 19276528 (Version 1)
Quarter: 2021Q2

REPORT INFORMATION
  Report Type: Report from Study
  Country: US (occurrence: US)
  Receive Date: 20210519
  Receipt Date: 20210519
  Transmission Date: 20210717
  Serious: Yes (Hospitalization, Other)
  Sender: FDA-Public Use
  Company Number: NVSC2021US104304

PATIENT
  Sex: Female

DRUGS (1)
  1. ENTRESTO [Suspect]
     Active Substance: SACUBITRIL\VALSARTAN
     Indication: CARDIAC FAILURE CONGESTIVE
     Dosage: 200 MG, BID (97/103 MG)
     Route: 048
     Dates: start: 201901

REACTIONS (4)
  - Neuromyelitis optica spectrum disorder [Unknown]
  - Peripheral swelling [Unknown]
  - Multiple sclerosis [Unknown]
  - Mass [Unknown]
